FAERS Safety Report 21701977 (Version 3)
Quarter: 2023Q1

REPORT INFORMATION
  Report Type: Other
  Country: DE (occurrence: None)
  Receive Date: 20221208
  Receipt Date: 20230302
  Transmission Date: 20230417
  Serious: Yes (Other)
  Sender: FDA-Public Use
  Company Number: DE-ROCHE-3174668

PATIENT
  Age: 32 Year
  Sex: Female
  Weight: 48 kg

DRUGS (5)
  1. OCRELIZUMAB [Suspect]
     Active Substance: OCRELIZUMAB
     Indication: Relapsing multiple sclerosis
     Route: 042
     Dates: start: 20180803, end: 20180822
  2. OCRELIZUMAB [Suspect]
     Active Substance: OCRELIZUMAB
     Route: 042
     Dates: start: 20190222
  3. ETONOGESTREL [Concomitant]
     Active Substance: ETONOGESTREL
     Indication: Contraception
     Route: 067
     Dates: start: 201807, end: 201911
  4. HORMONE COIL [Concomitant]
     Indication: Contraception
     Route: 015
     Dates: start: 201911
  5. BUPROPION HYDROCHLORIDE [Concomitant]
     Active Substance: BUPROPION HYDROCHLORIDE
     Indication: Depression
     Route: 048
     Dates: start: 201703

REACTIONS (1)
  - Osteonecrosis [Recovered/Resolved]

NARRATIVE: CASE EVENT DATE: 20210929
